FAERS Safety Report 4910861-5 (Version None)
Quarter: 2006Q1

REPORT INFORMATION
  Report Type: 
  Country: None (occurrence: None)
  Receive Date: 20060210
  Receipt Date: 20060210
  Transmission Date: 20060701
  Serious: Yes (Hospitalization, Other)
  Sender: FDA-Public Use
  Company Number: None

PATIENT
  Sex: Female
  Weight: 70.9 kg

DRUGS (2)
  1. CISPLATIN [Suspect]
     Indication: CERVIX CARCINOMA
     Dosage: 89 MG
     Dates: start: 20051128, end: 20051128
  2. TOPOTECAN [Suspect]
     Dosage: 2.6 MG
     Dates: start: 20051128, end: 20051129

REACTIONS (13)
  - ABDOMINAL PAIN [None]
  - BLOOD SODIUM DECREASED [None]
  - CONSTIPATION [None]
  - FAECALOMA [None]
  - HAEMATOCRIT DECREASED [None]
  - HAEMOGLOBIN DECREASED [None]
  - HYDRONEPHROSIS [None]
  - INAPPROPRIATE ANTIDIURETIC HORMONE SECRETION [None]
  - NAUSEA [None]
  - POST PROCEDURAL COMPLICATION [None]
  - RENAL IMPAIRMENT [None]
  - URETERAL STENT REMOVAL [None]
  - VOMITING [None]
